FAERS Safety Report 7400056-8 (Version None)
Quarter: 2011Q2

REPORT INFORMATION
  Report Type: 
  Country: None (occurrence: None)
  Receive Date: 20110407
  Receipt Date: 20110401
  Transmission Date: 20111010
  Serious: Yes (Hospitalization, Other)
  Sender: FDA-Public Use
  Company Number: VE-PFIZER INC-2011073097

PATIENT
  Age: 77 Year
  Sex: Female

DRUGS (5)
  1. COZAAR [Concomitant]
     Indication: HYPERTENSION
     Dosage: 50 MG, 2X/DAY
     Route: 048
  2. ZANIDIP [Concomitant]
     Indication: HYPERTENSION
     Dosage: 10 MG, 1X/DAY
     Route: 048
  3. LASIX [Concomitant]
     Indication: HYPERTENSION
     Dosage: 20 MG, 1X/DAY
     Route: 048
  4. ZOLOFT [Suspect]
     Indication: DEPRESSION
     Dosage: 50 MG, 1X/DAY
     Route: 048
     Dates: start: 20070101, end: 20110301
  5. DIOVENOR [Concomitant]
     Indication: PERIPHERAL VASCULAR DISORDER
     Dosage: 600 MG, 1X/DAY
     Route: 048

REACTIONS (2)
  - PULMONARY OEDEMA [None]
  - INFECTION [None]
